FAERS Safety Report 12435138 (Version 1)
Quarter: 2016Q2

REPORT INFORMATION
  Report Type: Spontaneous
  Country: US (occurrence: US)
  Receive Date: 20160603
  Receipt Date: 20160603
  Transmission Date: 20160815
  Serious: No
  Sender: FDA-Public Use
  Company Number: US-ROCHE-1492156

PATIENT
  Age: 56 Year
  Sex: Female

DRUGS (5)
  1. XELODA [Suspect]
     Active Substance: CAPECITABINE
     Indication: BREAST CANCER
     Dosage: 3 TABLETS FOR 14 DAYS
     Route: 048
     Dates: start: 20141010
  2. LOPRESSOR [Concomitant]
     Active Substance: METOPROLOL TARTRATE
     Route: 048
  3. REMICADE [Concomitant]
     Active Substance: INFLIXIMAB
     Route: 058
  4. XELODA [Suspect]
     Active Substance: CAPECITABINE
     Dosage: 1 TABLET FOR 14 DAYS
     Route: 048
     Dates: start: 20141010
  5. XELODA [Suspect]
     Active Substance: CAPECITABINE
     Dosage: 1 TABLET FOR 14 DAYS
     Route: 048
     Dates: start: 20141010, end: 20150320

REACTIONS (6)
  - Fatigue [Not Recovered/Not Resolved]
  - Diarrhoea [Not Recovered/Not Resolved]
  - Palmar-plantar erythrodysaesthesia syndrome [Not Recovered/Not Resolved]
  - Lymphoedema [Not Recovered/Not Resolved]
  - Hyperaesthesia [Not Recovered/Not Resolved]
  - Alopecia [Not Recovered/Not Resolved]

NARRATIVE: CASE EVENT DATE: 20141010
